FAERS Safety Report 18265694 (Version 2)
Quarter: 2020Q4

REPORT INFORMATION
  Report Type: Report from Study
  Country: None (occurrence: CO)
  Receive Date: 20200914
  Receipt Date: 20201016
  Transmission Date: 20210113
  Serious: Yes (Hospitalization)
  Sender: FDA-Public Use
  Company Number: CO-ABBVIE-20K-036-3534950-00

PATIENT
  Sex: Female

DRUGS (2)
  1. HUMIRA [Suspect]
     Active Substance: ADALIMUMAB
     Indication: HIDRADENITIS
     Route: 058
     Dates: start: 20161117
  2. HUMIRA [Suspect]
     Active Substance: ADALIMUMAB
     Indication: HIDRADENITIS
     Route: 058
     Dates: end: 20200806

REACTIONS (12)
  - Weight decreased [Recovering/Resolving]
  - Hidradenitis [Recovering/Resolving]
  - Inflammation [Recovering/Resolving]
  - Unevaluable event [Unknown]
  - Blood test abnormal [Unknown]
  - Blood iron decreased [Recovering/Resolving]
  - Pyrexia [Recovering/Resolving]
  - Wound complication [Recovering/Resolving]
  - Tachycardia [Recovering/Resolving]
  - Serum ferritin abnormal [Recovering/Resolving]
  - Pyrexia [Recovered/Resolved]
  - Anaemia [Recovered/Resolved]

NARRATIVE: CASE EVENT DATE: 2020
